FAERS Safety Report 9350195 (Version 3)
Quarter: 2013Q4

REPORT INFORMATION
  Report Type: Spontaneous
  Country: FR (occurrence: FR)
  Receive Date: 20130617
  Receipt Date: 20131017
  Transmission Date: 20140711
  Serious: Yes (Hospitalization)
  Sender: FDA-Public Use
  Company Number: FR-AMGEN-FRASP2013041714

PATIENT
  Age: 64 Year
  Sex: Female

DRUGS (5)
  1. ENBREL [Suspect]
     Indication: RHEUMATOID ARTHRITIS
     Dosage: 50 MG, WEEKLY
     Route: 058
     Dates: end: 20121120
  2. ENBREL [Suspect]
     Dosage: 25 MG, WEEKLY
     Route: 058
     Dates: start: 20130108, end: 201301
  3. METHOTREXATE [Suspect]
     Indication: RHEUMATOID ARTHRITIS
     Dosage: 7.5 MG, WEEKLY
     Route: 048
     Dates: end: 201302
  4. SPECIAFOLDINE [Concomitant]
     Dosage: 5 MG, 2 TIMES/WK
     Route: 048
  5. CORTANCYL [Concomitant]
     Dosage: 15 MG, QD
     Route: 048

REACTIONS (3)
  - Angiocentric lymphoma [Not Recovered/Not Resolved]
  - Septic shock [Unknown]
  - Acinetobacter infection [Unknown]
